FAERS Safety Report 8624846-9 (Version None)
Quarter: 2012Q3

REPORT INFORMATION
  Report Type: 
  Country: None (occurrence: None)
  Receive Date: 20120827
  Receipt Date: 20120823
  Transmission Date: 20120928
  Serious: Yes (Death)
  Sender: FDA-Public Use
  Company Number: US-BAYER-2012-088422

PATIENT
  Age: 63 Year
  Sex: Male

DRUGS (2)
  1. BETASERON [Suspect]
     Dosage: UNK
     Dates: start: 20090101, end: 20120720
  2. BETASERON [Suspect]
     Indication: RELAPSING-REMITTING MULTIPLE SCLEROSIS
     Dosage: UNK
     Dates: start: 19990901, end: 20080410

REACTIONS (1)
  - DEATH [None]
